FAERS Safety Report 24281585 (Version 1)
Quarter: 2024Q3

REPORT INFORMATION
  Report Type: Report from Study
  Country: US (occurrence: US)
  Receive Date: 20240904
  Receipt Date: 20240904
  Transmission Date: 20241017
  Serious: Yes (Other)
  Sender: ABBVIE
  Company Number: US-ABBVIE-5773184

PATIENT
  Age: 30 Year
  Sex: Female
  Weight: 70.76 kg

DRUGS (9)
  1. SKYRIZI [Suspect]
     Active Substance: RISANKIZUMAB-RZAA
     Indication: Crohn^s disease
     Route: 058
     Dates: start: 20231219
  2. COLACE [Concomitant]
     Active Substance: DOCUSATE SODIUM
     Indication: Constipation
     Dosage: FREQUENCY: PRN
     Route: 048
  3. CANASA [Concomitant]
     Active Substance: MESALAMINE
     Indication: Crohn^s disease
     Dosage: NIGHTLY
     Route: 054
  4. LIALDA [Concomitant]
     Active Substance: MESALAMINE
     Indication: Crohn^s disease
     Route: 048
  5. IRON [Concomitant]
     Active Substance: IRON
     Indication: Mineral supplementation
     Route: 048
     Dates: start: 20240826
  6. FOLIC ACID [Concomitant]
     Active Substance: FOLIC ACID
     Indication: Pregnancy
     Route: 048
     Dates: start: 20240510
  7. ASPIRIN [Concomitant]
     Active Substance: ASPIRIN
     Indication: High risk pregnancy
     Route: 048
     Dates: start: 20240425
  8. VITAMIN D [Concomitant]
     Active Substance: VITAMIN D NOS
     Indication: Vitamin supplementation
     Dosage: 2000 U
     Dates: start: 202405
  9. VITAMIN B12 [Concomitant]
     Active Substance: CYANOCOBALAMIN
     Indication: Vitamin supplementation
     Route: 030
     Dates: start: 20240723

REACTIONS (4)
  - Placental disorder [Not Recovered/Not Resolved]
  - Maternal exposure during pregnancy [Unknown]
  - Unevaluable event [Not Recovered/Not Resolved]
  - Nausea [Unknown]

NARRATIVE: CASE EVENT DATE: 20240627
